FAERS Safety Report 13524555 (Version 9)
Quarter: 2018Q1

REPORT INFORMATION
  Report Type: Spontaneous
  Country: US (occurrence: US)
  Receive Date: 20170508
  Receipt Date: 20180213
  Transmission Date: 20180508
  Serious: Yes (Hospitalization)
  Sender: FDA-Public Use
  Company Number: US-ACTELION-A-NJ2017-153333

PATIENT
  Age: 75 Year
  Sex: Female
  Weight: 50.34 kg

DRUGS (9)
  1. ADCIRCA [Concomitant]
     Active Substance: TADALAFIL
  2. ELIQUIS [Concomitant]
     Active Substance: APIXABAN
  3. UPTRAVI [Suspect]
     Active Substance: SELEXIPAG
     Indication: PULMONARY ARTERIAL HYPERTENSION
     Dosage: 600 MCG, BID
     Route: 048
  4. UPTRAVI [Suspect]
     Active Substance: SELEXIPAG
     Dosage: 200 MCG, BID
     Route: 048
     Dates: end: 20180206
  5. REMODULIN [Concomitant]
     Active Substance: TREPROSTINIL
     Dosage: UNK
     Dates: start: 20180130
  6. DILTIAZEM. [Concomitant]
     Active Substance: DILTIAZEM
  7. LETAIRIS [Concomitant]
     Active Substance: AMBRISENTAN
  8. UPTRAVI [Suspect]
     Active Substance: SELEXIPAG
     Dosage: 400MCG AM, 600MCG PM
     Route: 048
  9. UPTRAVI [Suspect]
     Active Substance: SELEXIPAG
     Dosage: 400 MCG, BID
     Route: 048

REACTIONS (11)
  - Dyspnoea [Unknown]
  - Haemoglobin decreased [Unknown]
  - Headache [Not Recovered/Not Resolved]
  - Abdominal discomfort [Unknown]
  - Muscle spasms [Recovered/Resolved]
  - Blood iron abnormal [Unknown]
  - Weight decreased [Unknown]
  - Vomiting [Unknown]
  - Feeding disorder [Unknown]
  - Catheter site pain [Unknown]
  - Nausea [Unknown]

NARRATIVE: CASE EVENT DATE: 20170427
